FAERS Safety Report 4439350-1 (Version None)
Quarter: 2004Q3

REPORT INFORMATION
  Report Type: 
  Country: None (occurrence: None)
  Receive Date: 20040831
  Receipt Date: 20040819
  Transmission Date: 20050211
  Serious: Yes (Death, Hospitalization)
  Sender: FDA-Public Use
  Company Number: 001-0981-M0006839

PATIENT
  Age: 77 Year
  Sex: Male
  Weight: 193 kg

DRUGS (10)
  1. ATORVASTATIN (ATORVASTATIN) [Suspect]
     Indication: CORONARY ARTERY DISEASE
     Dosage: SEE IMAGE
     Route: 048
     Dates: start: 19990416, end: 19990614
  2. ATORVASTATIN (ATORVASTATIN) [Suspect]
     Indication: CORONARY ARTERY DISEASE
     Dosage: SEE IMAGE
     Route: 048
     Dates: start: 19990615, end: 20000911
  3. ATENOLOL [Concomitant]
  4. POTASSIUM CHLORIDE [Concomitant]
  5. FUROSEMIDE 9FUROSEMIDE) [Concomitant]
  6. ACETYLSALICYLIC ACID SRT [Concomitant]
  7. LISINOPRIL [Concomitant]
  8. NAPROXEN [Concomitant]
  9. OMEPRAZOLE [Concomitant]
  10. TOCOPHEROL (TOCOPERHOL) [Concomitant]

REACTIONS (5)
  - ACUTE RESPIRATORY DISTRESS SYNDROME [None]
  - INTERSTITIAL LUNG DISEASE [None]
  - PNEUMONIA [None]
  - PNEUMONITIS [None]
  - POLYARTHRITIS [None]
